FAERS Safety Report 13264709 (Version 2)
Quarter: 2017Q1

REPORT INFORMATION
  Report Type: Spontaneous
  Country: JP (occurrence: JP)
  Receive Date: 20170223
  Receipt Date: 20170324
  Transmission Date: 20170428
  Serious: Yes (Other)
  Sender: FDA-Public Use
  Company Number: JP-009507513-1702JPN009114

PATIENT
  Age: 21 Year
  Sex: Male
  Weight: 74 kg

DRUGS (8)
  1. PROPOFOL. [Suspect]
     Active Substance: PROPOFOL
     Dosage: 100 MG/KG (ANESTHESIA MANTAINED)
  2. SEVOFLURANE. [Suspect]
     Active Substance: SEVOFLURANE
     Indication: ANAESTHESIA
     Dosage: 1.5 %, UNK  (ANESTHESIA INDUCED)
  3. SEVOFLURANE. [Suspect]
     Active Substance: SEVOFLURANE
     Dosage: 1.5 %, UNK  (ANESTHESIA MANTAINED)
  4. REMIFENTANIL HYDROCHLORIDE [Suspect]
     Active Substance: REMIFENTANIL HYDROCHLORIDE
     Dosage: 0.4MCG/KG/MINUTE (ANESTHESIA MANTAINED)
  5. REMIFENTANIL HYDROCHLORIDE [Suspect]
     Active Substance: REMIFENTANIL HYDROCHLORIDE
     Indication: ANAESTHESIA
     Dosage: 0.4MCG/KG/MINUTE  (ANESTHESIA INDUCED)
  6. ESLAX INTRAVENOUS 50MG/5.0ML [Suspect]
     Active Substance: ROCURONIUM BROMIDE
     Indication: NEUROMUSCULAR BLOCKADE
     Dosage: 50 MG, ONCE
  7. PROPOFOL. [Suspect]
     Active Substance: PROPOFOL
     Indication: ANAESTHESIA
     Dosage: 150 MG, UNK  (ANESTHESIA INDUCED)
  8. LIDOCAINE HYDROCHLORIDE. [Suspect]
     Active Substance: LIDOCAINE HYDROCHLORIDE
     Indication: ENDOTRACHEAL INTUBATION COMPLICATION
     Dosage: 3 ML, UNK

REACTIONS (1)
  - Pneumothorax [Recovered/Resolved]
